FAERS Safety Report 13974811 (Version 1)
Quarter: 2017Q3

REPORT INFORMATION
  Report Type: Spontaneous
  Country: US (occurrence: US)
  Receive Date: 20170915
  Receipt Date: 20170915
  Transmission Date: 20171128
  Serious: Yes (Other)
  Sender: FDA-Public Use
  Company Number: US-BAUSCH-BL-2017-026681

PATIENT
  Age: 71 Year
  Sex: Male

DRUGS (39)
  1. FOSCARNET [Suspect]
     Active Substance: FOSCARNET
     Dosage: DAY 224, 50 MG/KG TWICE DAILY PLUS CMV, IVIG 100 MG/KG THRICE WEEKLY
     Route: 065
  2. CIDOFOVIR. [Suspect]
     Active Substance: CIDOFOVIR
     Dosage: PROPHYLAXIS
  3. TACROLIMUS. [Concomitant]
     Active Substance: TACROLIMUS
     Dosage: ON DAY 157: MORNING/EVENING: 1/1 MG, TROUGH GOAL: 10.3 NG/ML
  4. MYCOPHENOLATE MOFETIL. [Concomitant]
     Active Substance: MYCOPHENOLATE MOFETIL
  5. AZATHIOPRINE. [Concomitant]
     Active Substance: AZATHIOPRINE
     Indication: GRANULOMATOSIS WITH POLYANGIITIS
  6. VALGANCICLOVIR. [Concomitant]
     Active Substance: VALGANCICLOVIR
     Dosage: POST-TRANSPLANT PROPHYLAXIS (DAY 4)
  7. TACROLIMUS. [Concomitant]
     Active Substance: TACROLIMUS
     Dosage: ON DAY 25: MORNING/EVENING: 4/4 MG?TROUGH GOAL: 6.6 NG/ML
  8. TACROLIMUS. [Concomitant]
     Active Substance: TACROLIMUS
     Dosage: ON DAY 73: MORNING/EVENING: 2/2 MG?TROUGH GOAL: 9.9 NG/ML
  9. TACROLIMUS. [Concomitant]
     Active Substance: TACROLIMUS
     Dosage: ON DAY 80: MORNING/EVENING: 1.5/1.5 MG, TROUGH GOAL: 10.9 NG/ML
  10. TACROLIMUS. [Concomitant]
     Active Substance: TACROLIMUS
     Dosage: ON DAY 143: MORNING/EVENING: 2/2 MG, TROUGH GOAL: 8.9 NG/ML
  11. TACROLIMUS. [Concomitant]
     Active Substance: TACROLIMUS
     Dosage: ON DAY 159: MORNING/EVENING: 1/1 MG, TROUGH GOAL: 9.4 NG/ML
  12. TACROLIMUS. [Concomitant]
     Active Substance: TACROLIMUS
     Dosage: ON DAY 217: MORNING/EVENING: 2/1 MG, TROUGH GOAL: 4.9 NG/ML
  13. GANCICLOVIR. [Suspect]
     Active Substance: GANCICLOVIR
     Dosage: DAY 150: EVERY 12 H (TWICE DAILY)
     Route: 042
  14. TACROLIMUS. [Concomitant]
     Active Substance: TACROLIMUS
     Indication: PRODUCT USED FOR UNKNOWN INDICATION
     Dosage: ON DAY 4: MORNING/EVENING: 3/3 MG?TROUGH GOAL: 4.9 NG/ML
  15. TACROLIMUS. [Concomitant]
     Active Substance: TACROLIMUS
     Dosage: ON DAY 150: MORNING/EVENING: 2/1 MG, TROUGH GOAL: 11.9 NG/ML
  16. TACROLIMUS. [Concomitant]
     Active Substance: TACROLIMUS
     Dosage: ON DAY 164: MORNING/EVENING: 1/1 MG, TROUGH GOAL: 7.9 NG/ML
  17. TACROLIMUS. [Concomitant]
     Active Substance: TACROLIMUS
     Dosage: ON DAY 173: MORNING/EVENING: 1/1 MG, TROUGH GOAL: 6.2 NG/ML
  18. TACROLIMUS. [Concomitant]
     Active Substance: TACROLIMUS
     Dosage: ON DAY 182: MORNING/EVENING: 1/1 MG, TROUGH GOAL: 7.0 NG/ML
  19. MYCOPHENOLATE MOFETIL. [Concomitant]
     Active Substance: MYCOPHENOLATE MOFETIL
     Indication: PRODUCT USED FOR UNKNOWN INDICATION
  20. PREDNISONE. [Concomitant]
     Active Substance: PREDNISONE
     Indication: PRODUCT USED FOR UNKNOWN INDICATION
     Dosage: TAPERED OFF DURING THE FIRST MONTH POST-TRANSPLANTATION
  21. VALGANCICLOVIR. [Concomitant]
     Active Substance: VALGANCICLOVIR
     Dosage: PROPHYLAXIS
  22. TACROLIMUS. [Concomitant]
     Active Substance: TACROLIMUS
     Dosage: ON DAY 178: MORNING/EVENING: 1/1 MG
  23. TACROLIMUS. [Concomitant]
     Active Substance: TACROLIMUS
     Dosage: ON DAY 196: MORNING/EVENING: 2/1 MG, TROUGH GOAL: 3.5 NG/ML
  24. GANCICLOVIR. [Suspect]
     Active Substance: GANCICLOVIR
     Indication: CYTOMEGALOVIRUS INFECTION
     Dosage: DAY 118: WHEN VIRAL LOAD ROSE FROM 1783 TO 3086 IU/ML, DOSE INCREASED
     Route: 042
  25. THYMOGLOBULIN [Concomitant]
     Active Substance: LAPINE T-LYMPHOCYTE IMMUNE GLOBULIN
     Indication: PRODUCT USED FOR UNKNOWN INDICATION
     Dosage: 2 DOSES OF 1.5 MG/KG
  26. TACROLIMUS. [Concomitant]
     Active Substance: TACROLIMUS
     Dosage: ON DAY 118: MORNING/EVENING: 1/1 MG, TROUGH GOAL: 10.7 NG/ML
  27. TACROLIMUS. [Concomitant]
     Active Substance: TACROLIMUS
     Dosage: ON DAY 136: MORNING/EVENING: 2/2 MG, TROUGH GOAL: 9.4 NG/ML
  28. TACROLIMUS. [Concomitant]
     Active Substance: TACROLIMUS
     Dosage: ON DAY 224: MORNING/EVENING: 2/1 MG, TROUGH GOAL: 5.1 NG/ML
  29. CIDOFOVIR. [Suspect]
     Active Substance: CIDOFOVIR
     Indication: CYTOMEGALOVIRUS INFECTION
     Route: 065
  30. METHYLPREDNISOLONE. [Concomitant]
     Active Substance: METHYLPREDNISOLONE
     Indication: PRODUCT USED FOR UNKNOWN INDICATION
  31. TACROLIMUS. [Concomitant]
     Active Substance: TACROLIMUS
     Dosage: ON DAY 115: MORNING/EVENING: 1.5/1.5 MG, TROUGH GOAL: 9.2 NG/ML
  32. TACROLIMUS. [Concomitant]
     Active Substance: TACROLIMUS
     Dosage: ON DAY 189: MORNING/EVENING: 1/1 MG, TROUGH GOAL: 4.5 NG/ML
  33. FOSCARNET [Suspect]
     Active Substance: FOSCARNET
     Indication: CYTOMEGALOVIRUS INFECTION
     Dosage: DAY 157, 50 MG/KG/12 H PLUS CMV, IVIG 100 MG/KG THRICE WEEKLY :7 DOSES
     Route: 065
  34. FOSCARNET [Suspect]
     Active Substance: FOSCARNET
     Dosage: DAY 178, FOSCARNET DOSE WAS CHANGED?(DAY 189:50 MG/KG EVERY 12 H AND DAY 196: 40 MG/KG EVERY 12 H)
     Route: 065
  35. TACROLIMUS. [Concomitant]
     Active Substance: TACROLIMUS
     Dosage: ON DAY 129: MORNING/EVENING: 2/2 MG, TROUGH GOAL: 5.4 NG/ML
  36. SULFAMETHOXAZOLE-TRIMETHOPRIM [Concomitant]
     Active Substance: SULFAMETHOXAZOLE\TRIMETHOPRIM
     Indication: INFECTION PROPHYLAXIS
  37. VALGANCICLOVIR. [Concomitant]
     Active Substance: VALGANCICLOVIR
     Indication: ANTIVIRAL PROPHYLAXIS
     Dosage: PROPHYLAXIS (EVERY 48 H)
  38. FOSCARNET [Suspect]
     Active Substance: FOSCARNET
     Dosage: DAY 159: 50 MG/KG EVERY 12 H
     Route: 065
  39. TACROLIMUS. [Concomitant]
     Active Substance: TACROLIMUS
     Dosage: ON DAY 210: MORNING/EVENING: 2/1 MG, TROUGH GOAL: 6.5 NG/ML

REACTIONS (1)
  - Drug resistance [Unknown]
